FAERS Safety Report 8419280-0 (Version None)
Quarter: 2012Q2

REPORT INFORMATION
  Report Type: 
  Country: None (occurrence: None)
  Receive Date: 20120607
  Receipt Date: 20120531
  Transmission Date: 20120825
  Serious: Yes (Other)
  Sender: FDA-Public Use
  Company Number: IL-ROCHE-1068410

PATIENT
  Age: 55 Year
  Sex: Female

DRUGS (3)
  1. AVASTIN [Suspect]
     Indication: BREAST CANCER METASTATIC
  2. XELODA [Suspect]
     Indication: BREAST CANCER
  3. PACLITAXEL [Suspect]
     Indication: BREAST CANCER METASTATIC

REACTIONS (7)
  - GAIT DISTURBANCE [None]
  - FATIGUE [None]
  - HYPOAESTHESIA [None]
  - PAIN IN EXTREMITY [None]
  - PATHOLOGICAL FRACTURE [None]
  - NEUROPATHY PERIPHERAL [None]
  - PROTEINURIA [None]
